FAERS Safety Report 5054594-6 (Version None)
Quarter: 2006Q2

REPORT INFORMATION
  Report Type: 
  Country: None (occurrence: None)
  Receive Date: 20060616
  Receipt Date: 20060308
  Transmission Date: 20061013
  Serious: No
  Sender: FDA-Public Use
  Company Number: 2006US000524

PATIENT
  Age: 91 Year
  Sex: Female

DRUGS (5)
  1. VESICARE [Suspect]
     Indication: HYPERTONIC BLADDER
     Dosage: ORAL
     Route: 048
     Dates: start: 20051213
  2. AVALIDE (IRBESARTAN) [Concomitant]
  3. ZELROM [Concomitant]
  4. PRICLOSE (TOLAZOLINE HYDROCHLORIDE) [Concomitant]
  5. ALLEGRA [Concomitant]

REACTIONS (1)
  - DRUG INEFFECTIVE [None]
